FAERS Safety Report 8173743-4 (Version None)
Quarter: 2012Q1

REPORT INFORMATION
  Report Type: 
  Country: None (occurrence: None)
  Receive Date: 20120229
  Receipt Date: 20120223
  Transmission Date: 20120608
  Serious: Yes (Hospitalization)
  Sender: FDA-Public Use
  Company Number: GB-BAYER-2012-017797

PATIENT
  Age: 72 Year
  Sex: Male

DRUGS (4)
  1. BEMIPARINE [Concomitant]
     Dosage: 1.2 G, UNK
     Route: 042
  2. CIPROFLOXACIN HYDROCHLORIDE [Suspect]
  3. TEICOPLANIN [Suspect]
     Dosage: DAILY DOSE 400 MG
     Route: 042
  4. FLUCLOXACILLIN [Concomitant]
     Dosage: 1 G, UNK
     Route: 042

REACTIONS (1)
  - HEPATITIS CHOLESTATIC [None]
